FAERS Safety Report 6195805-3 (Version None)
Quarter: 2009Q2

REPORT INFORMATION
  Report Type: 
  Country: None (occurrence: None)
  Receive Date: 20090520
  Receipt Date: 20090514
  Transmission Date: 20091009
  Serious: Yes (Hospitalization)
  Sender: FDA-Public Use
  Company Number: CA-BAYER-200917954NA

PATIENT
  Age: 22 Year
  Sex: Female

DRUGS (1)
  1. AVELOX [Suspect]
     Indication: ACUTE SINUSITIS
     Dosage: TOTAL DAILY DOSE: 400 MG  UNIT DOSE: 400 MG
     Route: 048
     Dates: start: 20081216, end: 20081216

REACTIONS (5)
  - DRUG RASH WITH EOSINOPHILIA AND SYSTEMIC SYMPTOMS [None]
  - FATIGUE [None]
  - HYPERSENSITIVITY [None]
  - PRURITUS [None]
  - RASH [None]
